FAERS Safety Report 24181219 (Version 4)
Quarter: 2024Q3

REPORT INFORMATION
  Report Type: Report from Study
  Country: US (occurrence: US)
  Receive Date: 20240806
  Receipt Date: 20240920
  Transmission Date: 20241016
  Serious: Yes (Other)
  Sender: TAKEDA
  Company Number: US-TAKEDA-2024TUS075702

PATIENT
  Sex: Male

DRUGS (10)
  1. MARIBAVIR [Suspect]
     Active Substance: MARIBAVIR
     Indication: Cytomegalovirus infection
     Dosage: 400 MILLIGRAM, BID
     Route: 048
     Dates: start: 20240805, end: 20240910
  2. ZOVIRAX [Concomitant]
     Active Substance: ACYCLOVIR
     Dosage: 1 DOSAGE FORM, BID
     Route: 048
     Dates: start: 20231205, end: 20240618
  3. CALCIUM CARBONATE\CHOLECALCIFEROL [Concomitant]
     Active Substance: CALCIUM CARBONATE\CHOLECALCIFEROL
     Dosage: 2000 INTERNATIONAL UNIT, QD
     Route: 048
  4. COZAAR [Concomitant]
     Active Substance: LOSARTAN POTASSIUM
     Indication: Spontaneous bacterial peritonitis
     Dosage: 1 DOSAGE FORM, QD
     Route: 048
  5. ZOFRAN [Concomitant]
     Active Substance: ONDANSETRON HYDROCHLORIDE
     Indication: Nausea
     Dosage: 1 DOSAGE FORM, Q8HR
     Route: 048
     Dates: start: 20231110
  6. ZOFRAN [Concomitant]
     Active Substance: ONDANSETRON HYDROCHLORIDE
     Indication: Vomiting
  7. BACTRIM DS [Concomitant]
     Active Substance: SULFAMETHOXAZOLE\TRIMETHOPRIM
     Indication: Prophylaxis
     Dosage: 1 DOSAGE FORM, 3/WEEK
     Route: 048
     Dates: start: 20231206
  8. SEPTRA DS [Concomitant]
     Active Substance: SULFAMETHOXAZOLE\TRIMETHOPRIM
     Dosage: 1 DOSAGE FORM, 3/WEEK
     Route: 048
  9. LAMISIL [Concomitant]
     Active Substance: TERBINAFINE HYDROCHLORIDE
     Indication: Skin bacterial infection
     Dosage: 1 DOSAGE FORM, QD
     Route: 048
     Dates: start: 20240604
  10. FAMOTIDINE [Concomitant]
     Active Substance: FAMOTIDINE
     Indication: Gastrooesophageal reflux disease
     Dosage: 1 DOSAGE FORM, QD
     Route: 048
     Dates: start: 20240703

REACTIONS (6)
  - Pancytopenia [Unknown]
  - Cytomegalovirus infection reactivation [Recovered/Resolved]
  - Hypogammaglobulinaemia [Unknown]
  - White blood cell count decreased [Unknown]
  - Onychomycosis [Unknown]
  - Dysgeusia [Unknown]
